FAERS Safety Report 8646429 (Version 3)
Quarter: 2014Q1

REPORT INFORMATION
  Report Type: Spontaneous
  Country: US (occurrence: US)
  Receive Date: 20120702
  Receipt Date: 20140108
  Transmission Date: 20141002
  Serious: Yes (Disabling)
  Sender: FDA-Public Use
  Company Number: US-ASTRAZENECA-2012SE40996

PATIENT
  Age: 52 Year
  Sex: Female
  Weight: 56.7 kg

DRUGS (30)
  1. NEXIUM [Suspect]
     Indication: GASTROOESOPHAGEAL REFLUX DISEASE
     Route: 048
     Dates: start: 2005
  2. NEXIUM [Suspect]
     Indication: GASTROOESOPHAGEAL REFLUX DISEASE
     Route: 048
     Dates: start: 2005
  3. NEXIUM [Suspect]
     Indication: GASTROOESOPHAGEAL REFLUX DISEASE
     Route: 048
     Dates: end: 20131227
  4. NEXIUM [Suspect]
     Indication: GASTROOESOPHAGEAL REFLUX DISEASE
     Route: 048
     Dates: end: 20131227
  5. PRILOSEC [Suspect]
     Indication: GASTROOESOPHAGEAL REFLUX DISEASE
     Route: 048
  6. PRILOSEC [Suspect]
     Indication: GASTROOESOPHAGEAL REFLUX DISEASE
     Route: 048
  7. PRILOSEC OTC [Suspect]
     Route: 048
     Dates: start: 20111117
  8. XANAX [Concomitant]
     Indication: ANXIETY
  9. XANAX [Concomitant]
     Indication: PANIC ATTACK
  10. XANAX [Concomitant]
     Indication: BIPOLAR I DISORDER
  11. XANAX [Concomitant]
     Indication: ANXIETY
     Route: 048
  12. XANAX [Concomitant]
     Indication: PANIC ATTACK
     Route: 048
  13. XANAX [Concomitant]
     Indication: BIPOLAR I DISORDER
     Route: 048
  14. NAPROXEN SODIUM [Concomitant]
     Indication: ARTHRITIS
     Route: 048
  15. NAPROXEN SODIUM [Concomitant]
     Indication: HEADACHE
     Route: 048
  16. CHLORD CLIDI [Concomitant]
     Indication: IRRITABLE BOWEL SYNDROME
     Route: 048
  17. CHLORD CLIDI [Concomitant]
     Indication: IRRITABLE BOWEL SYNDROME
     Route: 048
  18. VALIUM [Concomitant]
     Indication: ANXIETY
  19. VALIUM [Concomitant]
     Indication: PANIC ATTACK
  20. VALIUM [Concomitant]
     Indication: BIPOLAR I DISORDER
  21. ABILIFY [Concomitant]
     Indication: ANXIETY
  22. ABILIFY [Concomitant]
     Indication: PANIC ATTACK
  23. ABILIFY [Concomitant]
     Indication: BIPOLAR I DISORDER
  24. PEPCID [Concomitant]
  25. OTHER [Concomitant]
     Dosage: 3 TIMES A DAY
  26. AMBIEN CR [Concomitant]
     Indication: INSOMNIA
     Route: 048
  27. TOPAMAX [Concomitant]
     Indication: HEADACHE
     Route: 048
     Dates: start: 2012
  28. NEUROTONIN [Concomitant]
     Indication: RESTLESS LEGS SYNDROME
     Route: 048
  29. LIBRAX [Concomitant]
     Indication: IRRITABLE BOWEL SYNDROME
     Dosage: 2.5/5 BID
     Route: 048
  30. CALCIUM PLUS VITAMIN D [Concomitant]
     Indication: NUTRITIONAL SUPPLEMENTATION
     Route: 048

REACTIONS (21)
  - Road traffic accident [Unknown]
  - Dysphagia [Unknown]
  - Bipolar I disorder [Unknown]
  - Panic attack [Unknown]
  - Anxiety [Unknown]
  - Arthritis [Unknown]
  - House dust allergy [Unknown]
  - Paranasal sinus hypersecretion [Unknown]
  - Chest pain [Unknown]
  - Abdominal distension [Unknown]
  - Seasonal allergy [Unknown]
  - Ecchymosis [Unknown]
  - Blister [Unknown]
  - Gastrooesophageal reflux disease [Unknown]
  - Irritable bowel syndrome [Unknown]
  - Pain [Unknown]
  - Pruritus [Unknown]
  - Drug hypersensitivity [Unknown]
  - Dyspepsia [Unknown]
  - Drug ineffective [Unknown]
  - Drug dose omission [Unknown]
